FAERS Safety Report 24885581 (Version 1)
Quarter: 2025Q1

REPORT INFORMATION
  Report Type: Spontaneous
  Country: US (occurrence: US)
  Receive Date: 20250125
  Receipt Date: 20250125
  Transmission Date: 20250408
  Serious: No
  Sender: ABBVIE
  Company Number: US-ABBVIE-6100521

PATIENT

DRUGS (2)
  1. SKYRIZI [Suspect]
     Active Substance: RISANKIZUMAB-RZAA
     Indication: Product used for unknown indication
     Route: 042
  2. TYLENOL [Concomitant]
     Active Substance: ACETAMINOPHEN
     Indication: Product used for unknown indication

REACTIONS (14)
  - Pain [Unknown]
  - Asthenia [Unknown]
  - Crohn^s disease [Unknown]
  - Eye disorder [Unknown]
  - Tooth disorder [Unknown]
  - Toothache [Unknown]
  - Pain in jaw [Unknown]
  - Stomatitis [Unknown]
  - Tongue ulceration [Unknown]
  - Swollen tongue [Unknown]
  - Mouth swelling [Unknown]
  - Myalgia [Unknown]
  - Fatigue [Unknown]
  - Brain fog [Unknown]
